FAERS Safety Report 6147017-7 (Version None)
Quarter: 2009Q2

REPORT INFORMATION
  Report Type: 
  Country: None (occurrence: None)
  Receive Date: 20090407
  Receipt Date: 20090401
  Transmission Date: 20091009
  Serious: Yes (Life-Threatening, Hospitalization, Other)
  Sender: FDA-Public Use
  Company Number: DE-GILEAD-2009-0021271

PATIENT
  Sex: Male

DRUGS (2)
  1. VIREAD [Suspect]
     Indication: HEPATITIS B
     Route: 048
     Dates: start: 20080724, end: 20090214
  2. SEBIVO [Suspect]
     Indication: HEPATITIS B
     Route: 048
     Dates: start: 20080207, end: 20090214

REACTIONS (1)
  - PANCYTOPENIA [None]
